FAERS Safety Report 12342760 (Version 2)
Quarter: 2016Q2

REPORT INFORMATION
  Report Type: Spontaneous
  Country: DE (occurrence: DE)
  Receive Date: 20160506
  Receipt Date: 20160523
  Transmission Date: 20160815
  Serious: Yes (Life-Threatening, Hospitalization, Other)
  Sender: FDA-Public Use
  Company Number: DE-B.I. PHARMACEUTICALS,INC./RIDGEFIELD-2016-BI-28324DE

PATIENT
  Age: 92 Year
  Sex: Female
  Weight: 64 kg

DRUGS (6)
  1. TORASEMID [Concomitant]
     Active Substance: TORSEMIDE
     Indication: CARDIAC FAILURE
     Dosage: 20 MG
     Route: 048
  2. PANTOPRAZOL [Concomitant]
     Active Substance: PANTOPRAZOLE SODIUM
     Indication: GASTRITIS
     Dosage: 40 MG
     Route: 048
     Dates: start: 2014
  3. VALSARTAN/AMLODIPIN [Concomitant]
     Indication: HYPERTENSION
     Dosage: DOSE PER APPLICATION/DAILY DOSE: 320/10 MG
     Route: 048
     Dates: start: 2016
  4. PRADAXA [Suspect]
     Active Substance: DABIGATRAN ETEXILATE MESYLATE
     Route: 048
     Dates: start: 20160409
  5. METOPROLOL. [Concomitant]
     Active Substance: METOPROLOL
     Indication: TACHYARRHYTHMIA
     Dosage: 190 MG
     Route: 048
     Dates: start: 20160410
  6. PRADAXA [Suspect]
     Active Substance: DABIGATRAN ETEXILATE MESYLATE
     Indication: ATRIAL FIBRILLATION
     Dosage: 220 MG
     Route: 048
     Dates: start: 2014, end: 20160407

REACTIONS (1)
  - Transient ischaemic attack [Recovered/Resolved]

NARRATIVE: CASE EVENT DATE: 20160410
